FAERS Safety Report 24644244 (Version 4)
Quarter: 2024Q4

REPORT INFORMATION
  Report Type: Report from Study
  Country: US (occurrence: US)
  Receive Date: 20241120
  Receipt Date: 20241224
  Transmission Date: 20250114
  Serious: No
  Sender: ABBVIE
  Company Number: US-ABBVIE-6007101

PATIENT
  Age: 69 Year
  Sex: Male
  Weight: 83.915 kg

DRUGS (9)
  1. CREON [Suspect]
     Active Substance: PANCRELIPASE AMYLASE\PANCRELIPASE LIPASE\PANCRELIPASE PROTEASE
     Indication: Pancreatic failure
     Dosage: 2 AT MEALS 1 AT SNACK, FORM STRENGTH: 36000 UNIT
     Route: 048
     Dates: start: 202405, end: 202409
  2. CREON [Suspect]
     Active Substance: PANCRELIPASE AMYLASE\PANCRELIPASE LIPASE\PANCRELIPASE PROTEASE
     Indication: Pancreatic failure
     Dosage: LAST ADMIN DATE: 2024
     Route: 048
     Dates: start: 20240415
  3. CREON [Suspect]
     Active Substance: PANCRELIPASE AMYLASE\PANCRELIPASE LIPASE\PANCRELIPASE PROTEASE
     Indication: Pancreatic failure
     Dosage: 3 AT MEALS 1 AT SNACK, FORM STRENGTH: 36000 UNIT
     Route: 048
     Dates: start: 202409, end: 202412
  4. CREON [Suspect]
     Active Substance: PANCRELIPASE AMYLASE\PANCRELIPASE LIPASE\PANCRELIPASE PROTEASE
     Indication: Pancreatic failure
     Route: 048
  5. CREON [Suspect]
     Active Substance: PANCRELIPASE AMYLASE\PANCRELIPASE LIPASE\PANCRELIPASE PROTEASE
     Indication: Pancreatic failure
     Dosage: 2 AT MEALS 1 AT SNACK, FORM STRENGTH: 36000 UNIT
     Route: 048
     Dates: start: 202412
  6. VITAMIN C [Concomitant]
     Active Substance: ASCORBIC ACID
     Indication: Vitamin supplementation
  7. SIMVASTATIN [Concomitant]
     Active Substance: SIMVASTATIN
     Indication: Blood cholesterol abnormal
  8. PRILOSEC [Concomitant]
     Active Substance: OMEPRAZOLE MAGNESIUM
     Indication: Gastrooesophageal reflux disease
  9. MIRTAZAPINE [Concomitant]
     Active Substance: MIRTAZAPINE
     Indication: Gastrointestinal disorder

REACTIONS (9)
  - Neuropathy peripheral [Not Recovered/Not Resolved]
  - Abdominal pain [Recovering/Resolving]
  - Dyspepsia [Not Recovered/Not Resolved]
  - Nausea [Not Recovered/Not Resolved]
  - Adverse drug reaction [Unknown]
  - Malaise [Unknown]
  - Bowel movement irregularity [Recovering/Resolving]
  - Fatigue [Not Recovered/Not Resolved]
  - Gastric dilatation [Recovering/Resolving]

NARRATIVE: CASE EVENT DATE: 20240101
